FAERS Safety Report 9888936 (Version 1)
Quarter: 2014Q1

REPORT INFORMATION
  Report Type: Spontaneous
  Country: FR (occurrence: FR)
  Receive Date: 20140211
  Receipt Date: 20140211
  Transmission Date: 20141002
  Serious: Yes (Hospitalization)
  Sender: FDA-Public Use
  Company Number: FR-GLAXOSMITHKLINE-B0966073A

PATIENT
  Age: 66 Year
  Sex: Female

DRUGS (10)
  1. HYCAMTIN [Suspect]
     Indication: CERVIX CANCER METASTATIC
     Dosage: .75MGM2 SEE DOSAGE TEXT
     Route: 042
     Dates: start: 20110916, end: 20120104
  2. CISPLATIN [Suspect]
     Indication: CERVIX CANCER METASTATIC
     Dosage: 50MGM2 SEE DOSAGE TEXT
     Route: 042
     Dates: start: 20110916, end: 20120102
  3. CARBOPLATINE [Suspect]
     Indication: CERVIX CANCER METASTATIC
     Route: 042
     Dates: start: 20121214, end: 20130503
  4. PACLITAXEL [Suspect]
     Indication: CERVIX CANCER METASTATIC
     Dosage: 80MGM2 UNKNOWN
     Route: 042
     Dates: start: 20121214
  5. SKENAN [Concomitant]
  6. ACTISKENAN [Concomitant]
  7. JAMYLENE [Concomitant]
     Route: 048
  8. AMLOR [Concomitant]
     Route: 048
  9. FORLAX [Concomitant]
  10. SOLUPRED [Concomitant]

REACTIONS (5)
  - Myelodysplastic syndrome [Not Recovered/Not Resolved]
  - Aplastic anaemia [Unknown]
  - Normochromic normocytic anaemia [Unknown]
  - Renal failure acute [Unknown]
  - Bicytopenia [Unknown]
